FAERS Safety Report 25512808 (Version 4)
Quarter: 2025Q3

REPORT INFORMATION
  Report Type: Spontaneous
  Country: MX (occurrence: MX)
  Receive Date: 20250703
  Receipt Date: 20250815
  Transmission Date: 20251021
  Serious: No
  Sender: PFIZER
  Company Number: MX-PFIZER INC-PV202500076838

PATIENT
  Age: 14 Year
  Sex: Male

DRUGS (2)
  1. GENOTROPIN [Suspect]
     Active Substance: SOMATROPIN
     Dosage: 1.95 MG, DAILY (EVERY NIGHT)
     Route: 058
     Dates: start: 20250530
  2. LEVOTHYROXINE [Concomitant]
     Active Substance: LEVOTHYROXINE
     Indication: Thyroid disorder

REACTIONS (2)
  - Product prescribing error [Unknown]
  - Device leakage [Unknown]

NARRATIVE: CASE EVENT DATE: 20250101
